FAERS Safety Report 11693532 (Version 5)
Quarter: 2015Q4

REPORT INFORMATION
  Report Type: Report from Study
  Country: BR (occurrence: BR)
  Receive Date: 20151103
  Receipt Date: 20151228
  Transmission Date: 20160304
  Serious: Yes (Other)
  Sender: FDA-Public Use
  Company Number: PHHY2015BR139180

PATIENT
  Sex: Female
  Weight: 74 kg

DRUGS (8)
  1. DIOVAN [Suspect]
     Active Substance: VALSARTAN
     Indication: HYPERTENSION
     Dosage: 1 DF(80 MG), QD
     Route: 048
  2. GLIFAGE [Concomitant]
     Active Substance: METFORMIN HYDROCHLORIDE
     Indication: BLOOD GLUCOSE INCREASED
     Dosage: 2 DF, QD (2 TAB AT NIGHT )
     Route: 048
  3. CLINFOL [Concomitant]
     Indication: BLOOD CHOLESTEROL ABNORMAL
     Dosage: 1 DF, QD (1 TAB AT NIGHT)
     Route: 048
  4. CLIFAR [Concomitant]
     Indication: PRODUCT USED FOR UNKNOWN INDICATION
     Dosage: STARTED 3 YEARS AGO
     Route: 065
  5. DIOVAN [Suspect]
     Active Substance: VALSARTAN
     Dosage: 2 DF (160), QD (1 TABLET IN THE MORNING AND 1 AT NIGHT)
     Route: 048
  6. DIOVAN HCT [Suspect]
     Active Substance: HYDROCHLOROTHIAZIDE\VALSARTAN
     Indication: HYPERTENSION
     Dosage: VALSARTAN 80 MG AND HYDROCHLOROTHIAZIDE 12.5 MG
     Route: 048
     Dates: end: 201510
  7. CLINFAR [Concomitant]
     Active Substance: SIMVASTATIN
     Indication: BLOOD CHOLESTEROL ABNORMAL
     Dosage: 1 DF, QD (01 TB AT NIGHT) (STARTED 3 YEARS AGO)
     Route: 048
  8. EUTHYROX [Concomitant]
     Active Substance: LEVOTHYROXINE SODIUM
     Indication: HYPOTHYROIDISM
     Dosage: 125 MG, QD (STARTED 2 MONTHS AGO)
     Route: 048

REACTIONS (12)
  - Gastric cancer [Recovered/Resolved]
  - Depression [Recovering/Resolving]
  - Weight increased [Not Recovered/Not Resolved]
  - Gastrointestinal disorder [Unknown]
  - Pain [Unknown]
  - Diabetes mellitus [Recovering/Resolving]
  - Thyroid neoplasm [Unknown]
  - Malabsorption [Unknown]
  - Blood pressure increased [Recovering/Resolving]
  - Tension [Unknown]
  - Insomnia [Recovering/Resolving]
  - Headache [Recovered/Resolved]
